FAERS Safety Report 6794040-5 (Version None)
Quarter: 2010Q2

REPORT INFORMATION
  Report Type: 
  Country: None (occurrence: None)
  Receive Date: 20100624
  Receipt Date: 20070104
  Transmission Date: 20101027
  Serious: No
  Sender: FDA-Public Use
  Company Number: US-PFIZER INC-ENC200700002

PATIENT
  Sex: Male

DRUGS (16)
  1. ARGATROBAN [Suspect]
     Indication: HEPARIN-INDUCED THROMBOCYTOPENIA
     Dosage: 3 MCG/KG/MIN,FREQUENCY:  CONTINUOUS
     Route: 042
     Dates: start: 20061221
  2. WARFARIN SODIUM [Concomitant]
     Dates: start: 20070101, end: 20070103
  3. INSULIN GLARGINE [Concomitant]
  4. METOPROLOL TARTRATE [Concomitant]
  5. FOLIC ACID [Concomitant]
  6. VITAMIN TAB [Concomitant]
  7. THIAMINE [Concomitant]
  8. SENOKOT [Concomitant]
  9. INSULIN [Concomitant]
  10. DARBEPOETIN ALFA [Concomitant]
  11. ESOMEPRAZOLE MAGNESIUM [Concomitant]
  12. HYDROMORPHONE HYDROCHLORIDE [Concomitant]
  13. HALOPERIDOL [Concomitant]
  14. PARACETAMOL [Concomitant]
  15. MYLANTA [Concomitant]
  16. LORAZEPAM [Concomitant]

REACTIONS (1)
  - INTERNATIONAL NORMALISED RATIO INCREASED [None]
